FAERS Safety Report 26016195 (Version 1)
Quarter: 2025Q4

REPORT INFORMATION
  Report Type: Spontaneous
  Country: US (occurrence: US)
  Receive Date: 20251110
  Receipt Date: 20251110
  Transmission Date: 20260118
  Serious: No
  Sender: AUROBINDO
  Company Number: US-AUROBINDO-AUR-APL-2025-041718

PATIENT
  Sex: Female

DRUGS (1)
  1. FOLOTYN [Suspect]
     Active Substance: PRALATREXATE
     Indication: Peripheral T-cell lymphoma unspecified
     Dosage: 40 MILLIGRAM (THIS WAS GOING TO BE HER 6TH DOSE SHE RECEIVED OF FOLOTYN)
     Route: 065

REACTIONS (1)
  - Pain in jaw [Unknown]
